FAERS Safety Report 7617725-7 (Version None)
Quarter: 2011Q3

REPORT INFORMATION
  Report Type: 
  Country: None (occurrence: None)
  Receive Date: 20110718
  Receipt Date: 20110708
  Transmission Date: 20111222
  Serious: Yes (Other)
  Sender: FDA-Public Use
  Company Number: GXBR2011US03032

PATIENT
  Sex: Male
  Weight: 4.053 kg

DRUGS (1)
  1. AMOXICILLIN [Suspect]
     Indication: LYME DISEASE
     Dosage: MATERNAL DOSE: 500MG TID
     Route: 064

REACTIONS (5)
  - HYPOTONIA [None]
  - DEVELOPMENTAL DELAY [None]
  - POOR SUCKING REFLEX [None]
  - MATERNAL EXPOSURE DURING PREGNANCY [None]
  - ATAXIA [None]
